FAERS Safety Report 18643195 (Version 1)
Quarter: 2020Q4

REPORT INFORMATION
  Report Type: Report from Study
  Country: DE (occurrence: DE)
  Receive Date: 20201221
  Receipt Date: 20201221
  Transmission Date: 20210114
  Serious: Yes (Other)
  Sender: FDA-Public Use
  Company Number: DE-TORRENT-00019178

PATIENT
  Age: 40 Year
  Sex: Female

DRUGS (14)
  1. TIAPRIDE [Concomitant]
     Active Substance: TIAPRIDE
     Indication: CHOREOATHETOSIS
     Route: 048
  2. TRIHEXYPHENIDYL [Concomitant]
     Active Substance: TRIHEXYPHENIDYL
     Indication: CHOREOATHETOSIS
     Route: 048
  3. DEXMEDETOMIDINE. [Concomitant]
     Active Substance: DEXMEDETOMIDINE
     Indication: CHOREOATHETOSIS
     Dosage: 1.6 UG/KG/H
     Route: 042
  4. CLONIDINE. [Concomitant]
     Active Substance: CLONIDINE
     Indication: CHOREOATHETOSIS
     Route: 048
  5. CLONAZEPAM. [Concomitant]
     Active Substance: CLONAZEPAM
     Indication: CHOREOATHETOSIS
     Route: 048
  6. TETRABENAZINE. [Concomitant]
     Active Substance: TETRABENAZINE
     Indication: CHOREOATHETOSIS
     Route: 048
  7. BACLOFEN. [Concomitant]
     Active Substance: BACLOFEN
     Indication: CHOREOATHETOSIS
     Route: 048
  8. MIDAZOLAM. [Concomitant]
     Active Substance: MIDAZOLAM
     Indication: CHOREOATHETOSIS
     Dosage: 0.23 MG/KG/H
     Route: 042
  9. LEVOMEPROMAZINE [Concomitant]
     Active Substance: LEVOMEPROMAZINE
     Indication: OPISTHOTONUS
     Route: 048
  10. HALOPERIDOL. [Suspect]
     Active Substance: HALOPERIDOL
     Indication: CHOREOATHETOSIS
     Route: 048
  11. SUFENTA [Suspect]
     Active Substance: SUFENTANIL CITRATE
     Indication: OPISTHOTONUS
     Dosage: 0.3 UG/KG/H
     Route: 042
  12. OLANZAPINE. [Suspect]
     Active Substance: OLANZAPINE
     Indication: OPISTHOTONUS
     Route: 048
  13. PROPOFOL. [Concomitant]
     Active Substance: PROPOFOL
     Indication: CHOREOATHETOSIS
     Dosage: 5.45MG/KG/H
     Route: 042
  14. DUROGESIC SMAT [Suspect]
     Active Substance: FENTANYL
     Indication: OPISTHOTONUS
     Route: 062

REACTIONS (4)
  - Product use in unapproved indication [Unknown]
  - Dystonia [Recovered/Resolved]
  - Drug ineffective for unapproved indication [Unknown]
  - Off label use [Unknown]
